FAERS Safety Report 5759327-3 (Version None)
Quarter: 2008Q2

REPORT INFORMATION
  Report Type: 
  Country: None (occurrence: None)
  Receive Date: 20080530
  Receipt Date: 20080516
  Transmission Date: 20081010
  Serious: Yes (Other)
  Sender: FDA-Public Use
  Company Number: 2008S1008347

PATIENT
  Sex: Male

DRUGS (2)
  1. VALPROIC ACID [Suspect]
     Indication: EPILEPSY
     Dosage: 500 MG; TWICE A DAY TRANSPLACENTAL 500 MG; TRANSPLACENTAL; TWICE A DAY
     Route: 064
  2. LEVOTHYROXINE SODIUM [Suspect]
     Dosage: TRANSPLACENTAL, TRANSPLACENTAL
     Route: 064

REACTIONS (4)
  - CRANIOSYNOSTOSIS [None]
  - DRUG EXPOSURE DURING PREGNANCY [None]
  - HYPOTELORISM OF ORBIT [None]
  - MATERNAL DRUGS AFFECTING FOETUS [None]
